FAERS Safety Report 19738449 (Version 3)
Quarter: 2021Q3

REPORT INFORMATION
  Report Type: Spontaneous
  Country: JP (occurrence: JP)
  Receive Date: 20210824
  Receipt Date: 20210924
  Transmission Date: 20211014
  Serious: Yes (Hospitalization)
  Sender: FDA-Public Use
  Company Number: JP-JT-EVA202100490KERYXP

PATIENT
  Age: 8 Decade
  Sex: Male

DRUGS (3)
  1. RIONA [Suspect]
     Active Substance: FERRIC CITRATE ANHYDROUS
     Indication: HYPERPHOSPHATAEMIA
     Dosage: 250 MILLIGRAM, Q8H
     Route: 048
  2. FOSRENOL [Concomitant]
     Active Substance: LANTHANUM CARBONATE
     Dosage: 500 MILLIGRAM (TABLET), Q8H
     Route: 048
  3. FOSRENOL [Concomitant]
     Active Substance: LANTHANUM CARBONATE
     Dosage: 750 MILLIGRAM (TABLET), QD
     Route: 048

REACTIONS (1)
  - Occult blood [Not Recovered/Not Resolved]
